FAERS Safety Report 4723433-2 (Version None)
Quarter: 2005Q3

REPORT INFORMATION
  Report Type: 
  Country: None (occurrence: None)
  Receive Date: 20050725
  Receipt Date: 20050515
  Transmission Date: 20060218
  Serious: Yes (Hospitalization)
  Sender: FDA-Public Use
  Company Number: 2005AP03461

PATIENT
  Age: 48 Year
  Sex: Female

DRUGS (4)
  1. NOLVADEX [Suspect]
     Indication: BREAST CANCER
     Route: 048
     Dates: start: 20041228, end: 20050105
  2. NOLVADEX [Suspect]
     Route: 048
     Dates: start: 20050120, end: 20050410
  3. CERCINE [Concomitant]
     Route: 048
  4. LORFENAMIN [Concomitant]
     Route: 048

REACTIONS (2)
  - DUODENAL ULCER [None]
  - PANCREATITIS ACUTE [None]
